FAERS Safety Report 15437855 (Version 1)
Quarter: 2018Q3

REPORT INFORMATION
  Report Type: Spontaneous
  Country: JP (occurrence: JP)
  Receive Date: 20180927
  Receipt Date: 20180927
  Transmission Date: 20181010
  Serious: Yes (Hospitalization, Other)
  Sender: FDA-Public Use
  Company Number: JP-GLAXOSMITHKLINE-JP2018JPN173256

PATIENT
  Age: 88 Year
  Sex: Male

DRUGS (1)
  1. REQUIP [Suspect]
     Active Substance: ROPINIROLE HYDROCHLORIDE
     Dosage: 12 MG, QD
     Route: 048
     Dates: end: 20180909

REACTIONS (2)
  - Hospitalisation [Unknown]
  - Dysphagia [Recovering/Resolving]
